FAERS Safety Report 5353248-6 (Version None)
Quarter: 2007Q2

REPORT INFORMATION
  Report Type: 
  Country: None (occurrence: None)
  Receive Date: 20070608
  Receipt Date: 20070523
  Transmission Date: 20071010
  Serious: Yes (Death, Hospitalization)
  Sender: FDA-Public Use
  Company Number: 156895USA

PATIENT
  Age: 66 Year
  Sex: Male

DRUGS (3)
  1. CYCLOSPORINE [Suspect]
  2. SIMVASTATIN [Suspect]
     Dosage: 60 MG (60 MG, 1 IN 1 D)
  3. COLCHICINE [Suspect]
     Indication: GOUT
     Dosage: 1.2 MG (0.6 MG, 2 IN 1 D)

REACTIONS (7)
  - ASTHENIA [None]
  - BLOOD CREATINE PHOSPHOKINASE INCREASED [None]
  - MYALGIA [None]
  - MYOPATHY [None]
  - OPHTHALMOPLEGIA [None]
  - QUADRIPLEGIA [None]
  - SEPSIS [None]
